FAERS Safety Report 8484078-4 (Version None)
Quarter: 2012Q3

REPORT INFORMATION
  Report Type: 
  Country: None (occurrence: None)
  Receive Date: 20120703
  Receipt Date: 20120621
  Transmission Date: 20120928
  Serious: Yes (Other)
  Sender: FDA-Public Use
  Company Number: US-ELI_LILLY_AND_COMPANY-US201206007333

PATIENT
  Sex: Female
  Weight: 53 kg

DRUGS (2)
  1. INSULIN GLARGINE [Concomitant]
     Indication: TYPE 1 DIABETES MELLITUS
     Dosage: 34 U, QD
     Route: 058
     Dates: start: 19990101
  2. HUMALOG [Suspect]
     Indication: TYPE 1 DIABETES MELLITUS
     Dosage: UNK
     Dates: start: 19990101

REACTIONS (5)
  - VOMITING [None]
  - DIZZINESS [None]
  - FEMUR FRACTURE [None]
  - FALL [None]
  - HIP FRACTURE [None]
